FAERS Safety Report 7278900-7 (Version None)
Quarter: 2011Q1

REPORT INFORMATION
  Report Type: 
  Country: None (occurrence: None)
  Receive Date: 20110207
  Receipt Date: 20110131
  Transmission Date: 20110831
  Serious: Yes (Death)
  Sender: FDA-Public Use
  Company Number: US-GENENTECH-313133

PATIENT
  Age: 46 Year
  Sex: Female
  Weight: 70.5 kg

DRUGS (1)
  1. TNKASE [Suspect]
     Indication: CENTRAL VENOUS CATHETERISATION
     Dosage: 30 MG, SINGLE
     Route: 042
     Dates: start: 20110129

REACTIONS (1)
  - ENDOCARDITIS [None]
